FAERS Safety Report 9100147 (Version 1)
Quarter: 2013Q1

REPORT INFORMATION
  Report Type: Spontaneous
  Country: US (occurrence: US)
  Receive Date: 20130215
  Receipt Date: 20130215
  Transmission Date: 20140127
  Serious: No
  Sender: FDA-Public Use
  Company Number: US-PFIZER INC-2013057283

PATIENT
  Age: 80 Year
  Sex: Male
  Weight: 78.01 kg

DRUGS (1)
  1. REVATIO [Suspect]
     Indication: ERECTILE DYSFUNCTION
     Dosage: 20 MG, AS NEEDED
     Route: 048
     Dates: start: 201210

REACTIONS (3)
  - Orgasm abnormal [Unknown]
  - Erection increased [Unknown]
  - Off label use [Unknown]
